FAERS Safety Report 4771232-8 (Version None)
Quarter: 2005Q3

REPORT INFORMATION
  Report Type: 
  Country: None (occurrence: None)
  Receive Date: 20050912
  Receipt Date: 20050622
  Transmission Date: 20060218
  Serious: No
  Sender: FDA-Public Use
  Company Number: 2005-01338

PATIENT
  Age: 83 Year
  Sex: Male
  Weight: 81.6 kg

DRUGS (3)
  1. VELCADE [Suspect]
     Dosage: SEE IMAGE
     Dates: start: 20050207, end: 20050307
  2. VELCADE [Suspect]
     Dosage: SEE IMAGE
     Dates: start: 20041130
  3. ZOMETA [Concomitant]

REACTIONS (5)
  - ANOREXIA [None]
  - BACK PAIN [None]
  - DIFFICULTY IN WALKING [None]
  - NEUROPATHY PERIPHERAL [None]
  - WEIGHT DECREASED [None]
